FAERS Safety Report 12448964 (Version 3)
Quarter: 2016Q3

REPORT INFORMATION
  Report Type: Spontaneous
  Country: MX (occurrence: MX)
  Receive Date: 20160608
  Receipt Date: 20160722
  Transmission Date: 20161109
  Serious: Yes (Hospitalization, Other)
  Sender: FDA-Public Use
  Company Number: MX-SA-2016SA106603

PATIENT
  Age: 39 Year
  Sex: Male

DRUGS (1)
  1. LEMTRADA [Suspect]
     Active Substance: ALEMTUZUMAB
     Indication: MULTIPLE SCLEROSIS
     Dosage: STOP DATE: MAR-2016
     Route: 041
     Dates: start: 20160307

REACTIONS (9)
  - Multiple sclerosis relapse [Recovered/Resolved]
  - Thrombocytopenia [Recovered/Resolved]
  - Headache [Recovered/Resolved]
  - Irritability [Recovered/Resolved]
  - Photophobia [Recovered/Resolved]
  - Lymphopenia [Recovered/Resolved]
  - Pyrexia [Recovered/Resolved]
  - Leukopenia [Recovered/Resolved]
  - Oral disorder [Recovered/Resolved]

NARRATIVE: CASE EVENT DATE: 201604
